FAERS Safety Report 4398431-1 (Version None)
Quarter: 2004Q3

REPORT INFORMATION
  Report Type: 
  Country: None (occurrence: None)
  Receive Date: 20040715
  Receipt Date: 20021127
  Transmission Date: 20050211
  Serious: Yes (Hospitalization)
  Sender: FDA-Public Use
  Company Number: US-BRISTOL-MYERS SQUIBB COMPANY-12143145

PATIENT
  Age: 67 Year
  Sex: Male
  Weight: 69 kg

DRUGS (3)
  1. PACLITAXEL [Suspect]
     Indication: BLADDER CANCER
     Dosage: INITIAL DOSE ON 10-OCT-02
     Dates: start: 20021121, end: 20021121
  2. CISPLATIN [Suspect]
     Indication: BLADDER CANCER
     Dosage: INITIAL DOSE ON 10-OCT-02
     Dates: start: 20021121, end: 20021121
  3. GEMCITABINE [Suspect]
     Indication: BLADDER CANCER
     Dosage: INITIAL DOSE ON 10-OCT-02
     Dates: start: 20021121, end: 20021121

REACTIONS (5)
  - BLOOD CREATININE INCREASED [None]
  - COAGULOPATHY [None]
  - DEHYDRATION [None]
  - FATIGUE [None]
  - INFECTION [None]
